FAERS Safety Report 19824705 (Version 1)
Quarter: 2021Q3

REPORT INFORMATION
  Report Type: Spontaneous
  Country: US (occurrence: US)
  Receive Date: 20210913
  Receipt Date: 20210913
  Transmission Date: 20211014
  Serious: Yes (Life-Threatening, Hospitalization, Disabling)
  Sender: FDA-Public Use
  Company Number: None

PATIENT
  Age: 67 Year
  Sex: Female
  Weight: 49.05 kg

DRUGS (3)
  1. TYMLOS [Suspect]
     Active Substance: ABALOPARATIDE
     Indication: OSTEOPOROSIS
     Dosage: ?          OTHER STRENGTH:MCG PER DOSE;QUANTITY:90 INJECTION(S);?
     Route: 030
     Dates: start: 20210901, end: 20210901
  2. VITAMIN D3 [Concomitant]
     Active Substance: CHOLECALCIFEROL
  3. CALCIUM [Concomitant]
     Active Substance: CALCIUM

REACTIONS (7)
  - Dizziness [None]
  - Blood sodium decreased [None]
  - Fall [None]
  - Headache [None]
  - Nausea [None]
  - Seizure [None]
  - Cervical vertebral fracture [None]

NARRATIVE: CASE EVENT DATE: 20210902
